FAERS Safety Report 4688408-0 (Version None)
Quarter: 2005Q2

REPORT INFORMATION
  Report Type: 
  Country: None (occurrence: None)
  Receive Date: 20050610
  Receipt Date: 20050610
  Transmission Date: 20051028
  Serious: Yes (Hospitalization)
  Sender: FDA-Public Use
  Company Number: None

PATIENT
  Sex: Male
  Weight: 79.5 kg

DRUGS (1)
  1. DIDANOSINE [Suspect]
     Indication: HIV INFECTION
     Dosage: 400MG   DAILY     ORAL
     Route: 048
     Dates: start: 20040605, end: 20050606

REACTIONS (1)
  - PANCREATITIS ACUTE [None]
